FAERS Safety Report 8729740 (Version 6)
Quarter: 2013Q2

REPORT INFORMATION
  Report Type: Spontaneous
  Country: US (occurrence: US)
  Receive Date: 20120817
  Receipt Date: 20130627
  Transmission Date: 20140414
  Serious: Yes (Other)
  Sender: FDA-Public Use
  Company Number: US-BAYER-2012-082578

PATIENT
  Age: 47 Year
  Sex: Female

DRUGS (30)
  1. MAGNEVIST [Suspect]
     Indication: ANGIOGRAM
     Dosage: UNK
     Dates: start: 20010706
  2. MAGNEVIST [Suspect]
     Indication: ANGIOGRAM
     Dosage: UNK
     Dates: start: 20020304
  3. MAGNEVIST [Suspect]
     Indication: ANGIOGRAM
     Dosage: UNK
     Dates: start: 20040325
  4. MAGNEVIST [Suspect]
     Indication: ANGIOGRAM
     Dosage: UNK
     Dates: start: 20040326
  5. MAGNEVIST [Suspect]
     Indication: ANGIOGRAM
     Dosage: UNK
     Dates: start: 20041112
  6. MAGNEVIST [Suspect]
     Indication: ANGIOGRAM
     Dosage: UNK
     Dates: start: 20050217
  7. MAGNEVIST [Suspect]
     Indication: ANGIOGRAM
     Dosage: UNK
     Dates: start: 20050302
  8. MAGNEVIST [Suspect]
     Indication: ANGIOGRAM
     Dosage: 40 ML, UNK
     Dates: start: 20050330, end: 20050330
  9. MAGNEVIST [Suspect]
     Indication: ANGIOGRAM
     Dosage: UNK
     Dates: start: 20050329
  10. MAGNEVIST [Suspect]
     Indication: ANGIOGRAM
     Dosage: UNK
     Dates: start: 20050501
  11. MAGNEVIST [Suspect]
     Indication: ANGIOGRAM
     Dosage: UNK
     Dates: start: 20060724
  12. MAGNEVIST [Suspect]
     Indication: ANGIOGRAM
     Dosage: UNK
     Dates: start: 20060812
  13. MAGNEVIST [Suspect]
     Indication: ANGIOGRAM
     Dosage: UNK
     Dates: start: 20081209
  14. GADOLINIUM IN UNSPECIFIED DRUG [Suspect]
     Indication: NUCLEAR MAGNETIC RESONANCE IMAGING ABDOMINAL
     Dosage: UNK
     Dates: start: 20050701
  15. GADOLINIUM IN UNSPECIFIED DRUG [Suspect]
     Indication: NUCLEAR MAGNETIC RESONANCE IMAGING LIVER
  16. GADOLINIUM IN UNSPECIFIED DRUG [Suspect]
     Indication: HEPATIC MASS
  17. GADOLINIUM IN UNSPECIFIED DRUG [Suspect]
     Indication: RENAL TRANSPLANT
  18. GADOLINIUM IN UNSPECIFIED DRUG [Suspect]
     Indication: CENTRAL VENOUS CATHETERISATION
  19. NEPHROCAPS [Concomitant]
     Dosage: 1 DF, QD
     Route: 048
  20. PLAQUENIL [Concomitant]
     Dosage: 200 MG, BID
     Route: 048
  21. LIPITOR [Concomitant]
     Dosage: 20 MG, HS
     Route: 048
  22. RENAGEL [SEVELAMER] [Concomitant]
     Dosage: UNK UNK, BID WITH MEALS
     Route: 048
  23. PROGRAF [Concomitant]
     Dosage: UNK UNK, BID
  24. COUMADIN [Concomitant]
  25. METHYLPREDNISOLONE [Concomitant]
  26. MYCOPHENOLATE MOFETIL [Concomitant]
     Route: 042
  27. METOPROLOL [Concomitant]
     Route: 042
  28. FOLIC ACID [Concomitant]
     Route: 042
  29. FUROSEMIDE [Concomitant]
     Dosage: 80 MG, BID (Q12HR)
     Route: 048
  30. POTASSIUM [Concomitant]
     Indication: BLOOD POTASSIUM DECREASED

REACTIONS (35)
  - Nephrogenic systemic fibrosis [None]
  - Skin induration [None]
  - Joint stiffness [None]
  - Joint range of motion decreased [None]
  - Injury [None]
  - Pain [None]
  - Anxiety [None]
  - Emotional distress [None]
  - Anhedonia [None]
  - General physical health deterioration [None]
  - Deformity [None]
  - Scar [None]
  - Fear of disease [None]
  - Fear of death [None]
  - Depression [None]
  - Nervousness [None]
  - Musculoskeletal stiffness [None]
  - Skin tightness [None]
  - Arthralgia [None]
  - Rash [None]
  - Swelling [None]
  - Skin discolouration [None]
  - Skin lesion [None]
  - Skin hypertrophy [None]
  - Skin discolouration [None]
  - Skin fibrosis [None]
  - Skin hyperpigmentation [None]
  - Oedema peripheral [None]
  - Peau d^orange [None]
  - Rash [None]
  - Wound infection [None]
  - Lung disorder [None]
  - Cardiac disorder [None]
  - Injection site warmth [None]
  - Dizziness [None]
